FAERS Safety Report 23979334 (Version 1)
Quarter: 2024Q2

REPORT INFORMATION
  Report Type: Spontaneous
  Country: TW (occurrence: TW)
  Receive Date: 20240615
  Receipt Date: 20240615
  Transmission Date: 20240715
  Serious: Yes (Other)
  Sender: FDA-Public Use
  Company Number: TW-MLMSERVICE-20240529-PI081870-00258-1

PATIENT
  Age: 67 Year
  Sex: Male

DRUGS (22)
  1. QUETIAPINE [Interacting]
     Active Substance: QUETIAPINE
     Indication: Behaviour disorder
  2. PAROXETINE [Interacting]
     Active Substance: PAROXETINE
     Indication: Behaviour disorder
  3. RISPERIDONE [Interacting]
     Active Substance: RISPERIDONE
     Indication: Jealous delusion
  4. NALTREXONE [Concomitant]
     Active Substance: NALTREXONE
     Indication: Alcoholic psychosis
  5. QUETIAPINE [Interacting]
     Active Substance: QUETIAPINE
     Indication: Behaviour disorder
     Dosage: TITRATED UP SLOWLY TO 175 MG IN TOTAL DAILY
  6. QUETIAPINE [Interacting]
     Active Substance: QUETIAPINE
     Indication: Behaviour disorder
     Dosage: BEFORE BED
  7. QUETIAPINE [Interacting]
     Active Substance: QUETIAPINE
     Indication: Behaviour disorder
     Dosage: TAPERED DOWN TO 100 MG IN TOTAL DAILY
  8. QUETIAPINE [Interacting]
     Active Substance: QUETIAPINE
     Indication: Euphoric mood
  9. RISPERIDONE [Interacting]
     Active Substance: RISPERIDONE
     Indication: Jealous delusion
     Dosage: CROSS TITRATED
  10. PAROXETINE [Interacting]
     Active Substance: PAROXETINE
     Indication: Behaviour disorder
  11. PAROXETINE [Interacting]
     Active Substance: PAROXETINE
     Indication: Behaviour disorder
  12. QUETIAPINE [Interacting]
     Active Substance: QUETIAPINE
     Indication: Euphoric mood
     Dosage: TITRATED UP SLOWLY TO 175 MG IN TOTAL DAILY
  13. QUETIAPINE [Interacting]
     Active Substance: QUETIAPINE
     Indication: Euphoric mood
     Dosage: BEFORE BED
  14. QUETIAPINE [Interacting]
     Active Substance: QUETIAPINE
     Indication: Euphoric mood
     Dosage: TAPERED DOWN TO 100 MG IN TOTAL DAILY
  15. QUETIAPINE [Interacting]
     Active Substance: QUETIAPINE
     Indication: Agitation
  16. QUETIAPINE [Interacting]
     Active Substance: QUETIAPINE
     Indication: Agitation
     Dosage: TITRATED UP SLOWLY TO 175 MG IN TOTAL DAILY
  17. QUETIAPINE [Interacting]
     Active Substance: QUETIAPINE
     Indication: Agitation
     Dosage: BEFORE BED
  18. QUETIAPINE [Interacting]
     Active Substance: QUETIAPINE
     Indication: Agitation
     Dosage: TAPERED DOWN TO 100 MG IN TOTAL DAILY
  19. NALTREXONE [Concomitant]
     Active Substance: NALTREXONE
     Indication: Alcoholic psychosis
     Dosage: LOW-DOSE
     Route: 048
  20. NALTREXONE [Concomitant]
     Active Substance: NALTREXONE
     Indication: Alcohol use disorder
     Dosage: LOW-DOSE
     Route: 048
  21. NALTREXONE [Concomitant]
     Active Substance: NALTREXONE
     Indication: Alcohol use disorder
  22. RISPERIDONE [Interacting]
     Active Substance: RISPERIDONE
     Indication: Jealous delusion
     Dosage: INCREASED TO 2 MG DAILY MAXIMUM

REACTIONS (2)
  - Drug interaction [Recovered/Resolved]
  - Serotonin syndrome [Recovered/Resolved]
